FAERS Safety Report 20184432 (Version 2)
Quarter: 2022Q1

REPORT INFORMATION
  Report Type: Other
  Country: US (occurrence: None)
  Receive Date: 20211214
  Receipt Date: 20220104
  Transmission Date: 20220424
  Serious: Yes (Other)
  Sender: FDA-Public Use
  Company Number: US-ROCHE-2978144

PATIENT
  Age: 86 Year
  Sex: Male
  Weight: 68.100 kg

DRUGS (7)
  1. ALECENSA [Suspect]
     Active Substance: ALECTINIB HYDROCHLORIDE
     Indication: Lung neoplasm malignant
     Dosage: TAKE 4 CAPSULE(S) BY MOUTH TWICE A DAY
     Route: 048
     Dates: start: 2020
  2. ESCITALOPRAM [Concomitant]
     Active Substance: ESCITALOPRAM OXALATE
     Dosage: ONGOING YES
  3. FINASTERIDE [Concomitant]
     Active Substance: FINASTERIDE
     Dosage: ONGOING YES
  4. PRAVASTATIN [Concomitant]
     Active Substance: PRAVASTATIN
     Dosage: ONGOING YES
  5. TAMSULOSIN [Concomitant]
     Active Substance: TAMSULOSIN
     Dosage: ONGOING YES
  6. MEMANTINE [Concomitant]
     Active Substance: MEMANTINE
     Dosage: YES
  7. METFORMIN [Concomitant]
     Active Substance: METFORMIN HYDROCHLORIDE
     Dosage: YES

REACTIONS (4)
  - Recurrent cancer [Not Recovered/Not Resolved]
  - Aphonia [Not Recovered/Not Resolved]
  - Hypotension [Not Recovered/Not Resolved]
  - Weight decreased [Unknown]

NARRATIVE: CASE EVENT DATE: 20210701
